FAERS Safety Report 20437909 (Version 1)
Quarter: 2022Q1

REPORT INFORMATION
  Report Type: Spontaneous
  Country: US (occurrence: US)
  Receive Date: 20220207
  Receipt Date: 20220207
  Transmission Date: 20220423
  Serious: No
  Sender: FDA-Public Use
  Company Number: US-ALKERMES INC.-ALK-2022-000529

PATIENT
  Age: 39 Year
  Sex: Female

DRUGS (2)
  1. VIVITROL [Suspect]
     Active Substance: NALTREXONE
     Indication: Alcoholism
     Dosage: 380 MILLIGRAM, QMO
     Route: 030
     Dates: start: 20220125
  2. VIVITROL [Suspect]
     Active Substance: NALTREXONE
     Indication: Drug dependence
     Dosage: 380 MILLIGRAM, QMO
     Route: 030
     Dates: start: 2021, end: 2021

REACTIONS (7)
  - Social avoidant behaviour [Not Recovered/Not Resolved]
  - Hostility [Not Recovered/Not Resolved]
  - Substance abuse [Not Recovered/Not Resolved]
  - Loss of consciousness [Unknown]
  - Alcohol poisoning [Unknown]
  - Alcoholism [Not Recovered/Not Resolved]
  - Drug dependence [Not Recovered/Not Resolved]
